FAERS Safety Report 9494447 (Version 2)
Quarter: 2013Q3

REPORT INFORMATION
  Report Type: Spontaneous
  Country: US (occurrence: US)
  Receive Date: 20130903
  Receipt Date: 20130927
  Transmission Date: 20140515
  Serious: No
  Sender: FDA-Public Use
  Company Number: US-TEVA-429404USA

PATIENT
  Age: 30 Year
  Sex: Female
  Weight: 89.44 kg

DRUGS (2)
  1. PARAGARD 380A [Suspect]
     Indication: CONTRACEPTION
     Route: 015
     Dates: start: 20130731, end: 20130827
  2. ALDOMET [Concomitant]
     Indication: HYPERTENSION

REACTIONS (3)
  - Device expulsion [Recovered/Resolved]
  - Pelvic pain [Recovered/Resolved]
  - Metrorrhagia [Recovered/Resolved]
